FAERS Safety Report 7679238-6 (Version None)
Quarter: 2011Q3

REPORT INFORMATION
  Report Type: 
  Country: None (occurrence: None)
  Receive Date: 20110812
  Receipt Date: 20110802
  Transmission Date: 20111222
  Serious: Yes (Congenital Anomaly)
  Sender: FDA-Public Use
  Company Number: US-BAYER-2011-071583

PATIENT

DRUGS (1)
  1. MIRENA [Suspect]

REACTIONS (1)
  - CONJOINED TWINS [None]
